FAERS Safety Report 20449022 (Version 1)
Quarter: 2022Q1

REPORT INFORMATION
  Report Type: Spontaneous
  Country: US (occurrence: None)
  Receive Date: 20220208
  Receipt Date: 20220208
  Transmission Date: 20220423
  Serious: Yes (Hospitalization)
  Sender: FDA-Public Use
  Company Number: None

PATIENT
  Age: 80 Year
  Sex: Female

DRUGS (11)
  1. SOTROVIMAB [Suspect]
     Active Substance: SOTROVIMAB
     Indication: COVID-19
     Dosage: FREQUENCY : ONCE;?
     Route: 042
     Dates: start: 20220125, end: 20220125
  2. albuterol HFA 90 mcg/actuation inhaler, 2 puffs every 4 hours PRN [Concomitant]
  3. amLODIPine (NORVASC) 5 mg tablet, oral, daily [Concomitant]
  4. aspirin 81 mg, oral, Daily [Concomitant]
  5. atorvastatin (LIPITOR) 10mg, oral, daily [Concomitant]
  6. benzonatate (TESSALON PERLES), 200mg, oral, TID, PRN [Concomitant]
  7. cholecalciferol (Vitamin D3) 5,000 unit (125 mcg) tablet daily. [Concomitant]
  8. losartan (COZAAR), 100mg, oral, daily [Concomitant]
  9. metoprolol succinate (TOPROL XL), 150mg, oral, daily [Concomitant]
  10. potassium chloride (KLOR-CON) 10 mEq CR tablet,- 20mEq, oral daily. [Concomitant]
  11. venlafaxine (EFFEXOR-XR), 75mg, oral nightly [Concomitant]

REACTIONS (2)
  - Pulmonary embolism [None]
  - COVID-19 pneumonia [None]

NARRATIVE: CASE EVENT DATE: 20220127
